FAERS Safety Report 21465033 (Version 2)
Quarter: 2022Q4

REPORT INFORMATION
  Report Type: Spontaneous
  Country: CN (occurrence: CN)
  Receive Date: 20221017
  Receipt Date: 20221028
  Transmission Date: 20230112
  Serious: No
  Sender: FDA-Public Use
  Company Number: CN-KOREA IPSEN Pharma-2022-28167

PATIENT
  Age: 28 Year
  Sex: Female
  Weight: 41 kg

DRUGS (5)
  1. DYSPORT [Suspect]
     Active Substance: ABOBOTULINUMTOXINA
     Indication: Skin wrinkling
     Dosage: 105 UNITS, (FOREHEAD (AT THE HEAD (50 UNITS) AND GLABELLA (55 UNITS))
     Route: 065
     Dates: start: 20220604, end: 20220604
  2. DYSPORT [Suspect]
     Active Substance: ABOBOTULINUMTOXINA
     Indication: Skin wrinkling
  3. DYSPORT [Suspect]
     Active Substance: ABOBOTULINUMTOXINA
     Indication: Off label use
  4. HYALURONIC ACID [Suspect]
     Active Substance: HYALURONIC ACID
     Indication: Skin wrinkling
     Dosage: DOSE NOT REPORTED
     Route: 065
     Dates: start: 20220604, end: 20220604
  5. HYALURONIC ACID [Suspect]
     Active Substance: HYALURONIC ACID
     Indication: Skin wrinkling

REACTIONS (5)
  - Eyelid ptosis [Not Recovered/Not Resolved]
  - Skin tightness [Not Recovered/Not Resolved]
  - Injection site swelling [Not Recovered/Not Resolved]
  - Off label use [Unknown]
  - Prescribed overdose [Unknown]

NARRATIVE: CASE EVENT DATE: 20220101
